FAERS Safety Report 24872247 (Version 1)
Quarter: 2025Q1

REPORT INFORMATION
  Report Type: Spontaneous
  Country: DE (occurrence: DE)
  Receive Date: 20250122
  Receipt Date: 20250122
  Transmission Date: 20250409
  Serious: Yes (Death, Hospitalization, Other)
  Sender: DR REDDYS
  Company Number: None

PATIENT
  Age: 69 Year
  Sex: Female

DRUGS (2)
  1. CAPECITABINE [Suspect]
     Active Substance: CAPECITABINE
     Indication: Cholangiocarcinoma
  2. BRIVUDINE [Suspect]
     Active Substance: BRIVUDINE
     Indication: Herpes zoster
     Dosage: 125 MG, PER DAY
     Route: 048

REACTIONS (11)
  - Sepsis [Fatal]
  - Pancytopenia [Unknown]
  - Erythema [Unknown]
  - Rash [Unknown]
  - Mucosal inflammation [Unknown]
  - Toxicity to various agents [Unknown]
  - Skin exfoliation [Unknown]
  - Condition aggravated [Unknown]
  - Contraindicated product administered [Unknown]
  - Labelled drug-drug interaction issue [Unknown]
  - Herpes zoster [Unknown]
